FAERS Safety Report 9918128 (Version 2)
Quarter: 2014Q1

REPORT INFORMATION
  Report Type: Spontaneous
  Country: US (occurrence: US)
  Receive Date: 20140223
  Receipt Date: 20140223
  Transmission Date: 20141002
  Serious: Yes (Disabling)
  Sender: FDA-Public Use
  Company Number: US-GE HEALTHCARE MEDICAL DIAGNOSTICS-OSCN-PR-0906S-0320

PATIENT
  Age: 60 Year
  Sex: Male

DRUGS (3)
  1. OMNISCAN [Suspect]
     Indication: PERIPHERAL ARTERY BYPASS
     Route: 042
     Dates: start: 20050317, end: 20050317
  2. OMNISCAN [Suspect]
     Indication: VASCULAR OPERATION
     Route: 042
     Dates: start: 20050318, end: 20050318
  3. OMNISCAN [Suspect]
     Indication: MUSCULAR WEAKNESS
     Route: 042
     Dates: start: 20050414, end: 20050414

REACTIONS (1)
  - Nephrogenic systemic fibrosis [Not Recovered/Not Resolved]
